FAERS Safety Report 9847010 (Version 2)
Quarter: 2014Q1

REPORT INFORMATION
  Report Type: Spontaneous
  Country: HU (occurrence: HU)
  Receive Date: 20140127
  Receipt Date: 20140205
  Transmission Date: 20141002
  Serious: Yes (Other)
  Sender: FDA-Public Use
  Company Number: HU-US-EMD SERONO, INC.-7264148

PATIENT
  Age: 54 Year
  Sex: Female
  Weight: 59 kg

DRUGS (1)
  1. SAIZEN [Suspect]
     Indication: HORMONE REPLACEMENT THERAPY
     Route: 058
     Dates: start: 20140109, end: 20140117

REACTIONS (1)
  - Urticaria [Recovered/Resolved]
